FAERS Safety Report 22642659 (Version 1)
Quarter: 2023Q2

REPORT INFORMATION
  Report Type: Spontaneous
  Country: US (occurrence: US)
  Receive Date: 20230627
  Receipt Date: 20230627
  Transmission Date: 20230722
  Serious: No
  Sender: FDA-Public Use
  Company Number: US-drreddys-SPO/USA/23/0165240

PATIENT
  Age: 25 Year
  Sex: Male

DRUGS (3)
  1. ACCUTANE [Suspect]
     Active Substance: ISOTRETINOIN
     Indication: Product used for unknown indication
     Dosage: RMA ISSUE DATE: 18 JANUARY 2023 12:00:29 PM, 09 FEBRUARY 2023 11:35:23 AM, 10  MARCH 2023 12:06:33 P
  2. ACCUTANE [Suspect]
     Active Substance: ISOTRETINOIN
     Dosage: RMA ISSUE DATE: 13 APRIL 2023 11:37:26 AM
  3. ACCUTANE [Suspect]
     Active Substance: ISOTRETINOIN
     Dosage: RMA ISSUE DATE: 09 FEBRUARY 2023 11:35:23 AM, 10 MARCH 2023 12:06:33 PM, 13 APRIL 2023 11:37:26 AM

REACTIONS (1)
  - Laboratory test abnormal [Unknown]
